FAERS Safety Report 8992187 (Version 1)
Quarter: 2012Q4

REPORT INFORMATION
  Report Type: 
  Country: BR (occurrence: BR)
  Receive Date: 20121231
  Receipt Date: 20121231
  Transmission Date: 20130627
  Serious: Yes (Other)
  Sender: FDA-Public Use
  Company Number: PHHY2012BR121075

PATIENT
  Age: 80 Year
  Sex: Female
  Weight: 59 kg

DRUGS (11)
  1. ACLASTA [Suspect]
     Indication: OSTEOPOROSIS
     Dosage: 5mg/100mL annually
     Route: 042
     Dates: start: 20121219
  2. TYLENOL [Suspect]
     Indication: PROPHYLAXIS
  3. PRELONE [Concomitant]
     Indication: RHEUMATIC DISORDER
     Dosage: 1 DF,every other day
  4. ATENOLOL [Concomitant]
     Indication: ARRHYTHMIA
     Dosage: 1 DF, daily
  5. LOSARTAN//LOSARTAN POTASSIUM [Concomitant]
     Indication: BLOOD PRESSURE
     Dosage: 1 DF, daily
     Route: 048
  6. OSCAL D [Concomitant]
     Indication: OSTEOPOROSIS
     Dosage: 1 DF
     Route: 048
  7. PROLOPA [Concomitant]
     Indication: PARKINSON^S DISEASE
     Dosage: 1 DF,every other day
  8. GABANEURIN [Concomitant]
     Dosage: 1 DF, at night
     Route: 048
  9. DIACEREIN [Concomitant]
     Dosage: 1 DF, Daily
     Route: 048
  10. LABIRIN [Concomitant]
     Indication: LABYRINTHITIS
     Dosage: 2 DF, daily
  11. GINKGO BILOBA [Concomitant]
     Indication: LABYRINTHITIS
     Dosage: 2 DF, (1 tablet in the morning and 1 tablet at night)

REACTIONS (5)
  - Blood urine present [Recovering/Resolving]
  - Aphagia [Not Recovered/Not Resolved]
  - Vomiting [Not Recovered/Not Resolved]
  - Pain [Not Recovered/Not Resolved]
  - Asthenia [Recovering/Resolving]
